FAERS Safety Report 8184445 (Version 4)
Quarter: 2013Q2

REPORT INFORMATION
  Report Type: Spontaneous
  Country: US (occurrence: US)
  Receive Date: 20111017
  Receipt Date: 20130422
  Transmission Date: 20140414
  Serious: Yes (Other)
  Sender: FDA-Public Use
  Company Number: US-ASTRAZENECA-2011SE04415

PATIENT
  Age: 68 Year
  Sex: Female

DRUGS (4)
  1. NEXIUM [Suspect]
     Indication: GASTROOESOPHAGEAL REFLUX DISEASE
     Route: 048
  2. NEXIUM [Suspect]
     Indication: GASTROOESOPHAGEAL REFLUX DISEASE
     Route: 048
  3. CRESTOR [Suspect]
     Indication: DYSLIPIDAEMIA
     Route: 048
  4. ANTIBIOTICS [Concomitant]

REACTIONS (13)
  - Pharyngeal polyp [Unknown]
  - Adverse event [Unknown]
  - Infection [Unknown]
  - Immunodeficiency [Unknown]
  - Abasia [Unknown]
  - Pyrexia [Unknown]
  - Influenza [Unknown]
  - Pain [Unknown]
  - Blood cholesterol increased [Unknown]
  - Diarrhoea [Unknown]
  - Malaise [Unknown]
  - Abdominal discomfort [Unknown]
  - Drug dose omission [Unknown]
